FAERS Safety Report 15434577 (Version 2)
Quarter: 2018Q3

REPORT INFORMATION
  Report Type: Report from Study
  Country: JP (occurrence: JP)
  Receive Date: 20180927
  Receipt Date: 20180927
  Transmission Date: 20181010
  Serious: Yes (Hospitalization)
  Sender: FDA-Public Use
  Company Number: JP-BAYER-2018-108389

PATIENT
  Age: 52 Year
  Sex: Male
  Weight: 62.8 kg

DRUGS (6)
  1. DAIPHEN [Suspect]
     Active Substance: SULFAMETHOXAZOLE\TRIMETHOPRIM
     Indication: INFECTION PROPHYLAXIS
     Dosage: DAILY DOSE 2 DF
     Route: 048
     Dates: start: 20180516
  2. AZILSARTAN [Concomitant]
     Active Substance: AZILSARTAN KAMEDOXOMIL
     Indication: HYPERTENSION
     Dosage: DAILY DOSE 20 MG
     Route: 048
     Dates: start: 20180425
  3. AMLODIPINE [Concomitant]
     Active Substance: AMLODIPINE BESYLATE
     Indication: HYPERTENSION
     Dosage: DAILY DOSE 5 MG
     Route: 048
     Dates: start: 20180425, end: 20180627
  4. COPANLISIB. [Suspect]
     Active Substance: COPANLISIB
     Indication: NON-HODGKIN^S LYMPHOMA RECURRENT
     Dosage: 60 MG, QD
     Route: 041
     Dates: start: 20180509, end: 20180620
  5. RITUXIMAB. [Suspect]
     Active Substance: RITUXIMAB
     Indication: NON-HODGKIN^S LYMPHOMA RECURRENT
     Dosage: DAILY DOSE 375 MG/M2
     Route: 041
     Dates: start: 20180509, end: 20180530
  6. ATOVAQUONE. [Concomitant]
     Active Substance: ATOVAQUONE
     Indication: INFECTION PROPHYLAXIS
     Dosage: DAILY DOSE 10 MG
     Route: 048
     Dates: start: 20180607, end: 20180627

REACTIONS (2)
  - Hepatitis acute [Recovered/Resolved]
  - Anaphylactic reaction [Recovered/Resolved]

NARRATIVE: CASE EVENT DATE: 20180604
